FAERS Safety Report 5171208-5 (Version None)
Quarter: 2006Q4

REPORT INFORMATION
  Report Type: 
  Country: None (occurrence: None)
  Receive Date: 20061213
  Receipt Date: 20060405
  Transmission Date: 20070319
  Serious: Yes (Hospitalization)
  Sender: FDA-Public Use
  Company Number: US-AMGEN-KDL175331

PATIENT
  Sex: Female

DRUGS (3)
  1. ENBREL [Suspect]
     Indication: PSORIATIC ARTHROPATHY
     Route: 058
     Dates: start: 20051004, end: 20060301
  2. ENBREL [Suspect]
     Indication: PSORIASIS
  3. LIPITOR [Concomitant]

REACTIONS (1)
  - CARDIAC FAILURE CONGESTIVE [None]
